FAERS Safety Report 12726258 (Version 1)
Quarter: 2016Q3

REPORT INFORMATION
  Report Type: Spontaneous
  Country: PE (occurrence: PE)
  Receive Date: 20160908
  Receipt Date: 20160908
  Transmission Date: 20161109
  Serious: Yes (Other)
  Sender: FDA-Public Use
  Company Number: PE-PFIZER INC-2016416862

PATIENT
  Age: 80 Year
  Sex: Female

DRUGS (1)
  1. ZOLOFT [Suspect]
     Active Substance: SERTRALINE HYDROCHLORIDE
     Dosage: UNK

REACTIONS (5)
  - Senile dementia [Unknown]
  - Depression [Unknown]
  - Dementia Alzheimer^s type [Unknown]
  - Emotional distress [Unknown]
  - Crying [Unknown]
